FAERS Safety Report 25335579 (Version 2)
Quarter: 2025Q2

REPORT INFORMATION
  Report Type: Spontaneous
  Country: GB (occurrence: GB)
  Receive Date: 20250520
  Receipt Date: 20250625
  Transmission Date: 20250717
  Serious: Yes (Hospitalization)
  Sender: MYLAN
  Company Number: GB-MYLANLABS-2025M1041474

PATIENT
  Sex: Male
  Weight: 83 kg

DRUGS (7)
  1. CLOZARIL [Suspect]
     Active Substance: CLOZAPINE
     Indication: Schizophrenia
     Dosage: UNK, BID (500 MG MANE 400 MG NOCTE)
     Dates: start: 20060609, end: 202505
  2. PROCYCLIDINE [Concomitant]
     Active Substance: PROCYCLIDINE
     Dosage: 0.5 DOSAGE FORM, BID (TWICE A DAY)
  3. ABILIFY [Concomitant]
     Active Substance: ARIPIPRAZOLE
     Dosage: 10 MILLIGRAM, QD (ONCE DAILY)
  4. SERTRALINE [Concomitant]
     Active Substance: SERTRALINE HYDROCHLORIDE
     Dosage: 100 MILLIGRAM, BID (TWICE A DAILY)
  5. DESMOPRESSIN [Concomitant]
     Active Substance: DESMOPRESSIN
     Dosage: 200 MICROGRAM, PM (NOCTE)
  6. CLONAZEPAM [Concomitant]
     Active Substance: CLONAZEPAM
     Dosage: 500 MICROGRAM, BID (TWICE DAILY)
  7. SCOPOLAMINE HYDROBROMIDE [Concomitant]
     Active Substance: SCOPOLAMINE HYDROBROMIDE
     Dosage: 2 DOSAGE FORM, PM (NOCTE)

REACTIONS (4)
  - Schizophrenia [Recovering/Resolving]
  - Malaise [Unknown]
  - Substance use [Unknown]
  - Delusion [Unknown]

NARRATIVE: CASE EVENT DATE: 20250501
